FAERS Safety Report 17631314 (Version 1)
Quarter: 2020Q2

REPORT INFORMATION
  Report Type: Spontaneous
  Country: FR (occurrence: FR)
  Receive Date: 20200406
  Receipt Date: 20200406
  Transmission Date: 20200713
  Serious: Yes (Hospitalization)
  Sender: FDA-Public Use
  Company Number: FR-SUN PHARMACEUTICAL INDUSTRIES LTD-2020RR-235899

PATIENT
  Age: 67 Year
  Sex: Male
  Weight: 76.8 kg

DRUGS (7)
  1. ZELITREX 500 MG, COMPRIME ENROBE [Concomitant]
     Active Substance: VALACYCLOVIR HYDROCHLORIDE
     Indication: ANTIVIRAL PROPHYLAXIS
     Dosage: 2 DOSAGE FORM, DAILY
     Route: 048
     Dates: start: 20191112, end: 201912
  2. ALLOPURINOL. [Suspect]
     Active Substance: ALLOPURINOL
     Indication: PROPHYLAXIS
     Dosage: 300MG/JR
     Route: 048
     Dates: start: 20191112, end: 201912
  3. BENDAMUSTINE (CHLORHYDRATE DE) [Suspect]
     Active Substance: BENDAMUSTINE HYDROCHLORIDE
     Indication: WALDENSTROM^S MACROGLOBULINAEMIA
     Dosage: INCONNUE
     Route: 042
     Dates: start: 20191109, end: 20191110
  4. BACTRIM [Suspect]
     Active Substance: SULFAMETHOXAZOLE\TRIMETHOPRIM
     Indication: INFECTION PROPHYLAXIS
     Dosage: 1CP LE LUNDI, MERCREDI, VENDREDI
     Route: 048
     Dates: start: 20191112, end: 201912
  5. SPECIAFOLDINE [Suspect]
     Active Substance: FOLIC ACID
     Indication: VITAMIN SUPPLEMENTATION
     Dosage: INCONUE ()
     Route: 048
  6. LEDERFOLINE 25 MG, COMPRIME [Concomitant]
     Active Substance: LEUCOVORIN CALCIUM
     Indication: VITAMIN SUPPLEMENTATION
     Dosage: INCONUE
     Route: 048
     Dates: start: 20191112, end: 201912
  7. CLAMOXYL (AMOXICILLINE SODIQUE\AMOXICILLINE TRIHYDRATE) [Suspect]
     Active Substance: AMOXICILLIN
     Indication: INFECTION PROPHYLAXIS
     Dosage: 500MG 2 FOIS PAR JOUR
     Route: 048
     Dates: start: 20191112, end: 201912

REACTIONS (3)
  - Diarrhoea [Recovering/Resolving]
  - Enteritis [Recovered/Resolved]
  - Vomiting [Recovering/Resolving]

NARRATIVE: CASE EVENT DATE: 20191120
